FAERS Safety Report 5053256-9 (Version None)
Quarter: 2006Q3

REPORT INFORMATION
  Report Type: 
  Country: None (occurrence: None)
  Receive Date: 20060712
  Receipt Date: 20060628
  Transmission Date: 20061208
  Serious: Yes (Hospitalization)
  Sender: FDA-Public Use
  Company Number: 8017588

PATIENT
  Age: 3 Year
  Sex: Male

DRUGS (8)
  1. KEPPRA [Suspect]
     Indication: EPILEPSY
     Dosage: 225 MG 2/D PO
     Route: 048
     Dates: start: 20060515, end: 20060611
  2. KEPPRA [Suspect]
     Indication: EPILEPSY
     Dosage: 850 MG PO
     Route: 048
     Dates: start: 20060612, end: 20060615
  3. KEPPRA [Suspect]
     Indication: EPILEPSY
     Dosage: 500 MG 2/D PO
     Route: 048
     Dates: start: 20060616, end: 20060628
  4. KEPPRA [Suspect]
     Indication: EPILEPSY
     Dosage: 950 MG PO
     Route: 048
     Dates: start: 20060629
  5. PHENOBARBITAL TAB [Concomitant]
  6. PHENOBARBITAL TAB [Concomitant]
  7. ZONISAMIDE [Concomitant]
  8. DEPAKOTE [Concomitant]

REACTIONS (3)
  - ENCEPHALITIS VIRAL [None]
  - EPISTAXIS [None]
  - TREMOR [None]
